FAERS Safety Report 15633132 (Version 3)
Quarter: 2019Q1

REPORT INFORMATION
  Report Type: Spontaneous
  Country: US (occurrence: US)
  Receive Date: 20181119
  Receipt Date: 20190103
  Transmission Date: 20190417
  Serious: No
  Sender: FDA-Public Use
  Company Number: US-PFIZER INC-2018473072

PATIENT
  Age: 75 Year
  Sex: Female
  Weight: 72.56 kg

DRUGS (3)
  1. FASLODEX [Suspect]
     Active Substance: FULVESTRANT
     Indication: BREAST CANCER METASTATIC
     Dosage: 500 MG, UNK (500 MG; 250 MG INTRAMUSCULAR INJECTION IN EACH BUTTOCK)
     Route: 030
     Dates: start: 201807
  2. FASLODEX [Suspect]
     Active Substance: FULVESTRANT
     Dosage: UNK, MONTHLY (ONCE A MONTH INTRAMUSCULARLY)
     Route: 030
  3. IBRANCE [Suspect]
     Active Substance: PALBOCICLIB
     Indication: BREAST CANCER METASTATIC
     Dosage: 125 MG, CYCLIC (DAILY FOR 21 DAYS)
     Route: 048
     Dates: start: 201807

REACTIONS (6)
  - Rhinorrhoea [Not Recovered/Not Resolved]
  - Fatigue [Not Recovered/Not Resolved]
  - Irritability [Not Recovered/Not Resolved]
  - Eye discharge [Not Recovered/Not Resolved]
  - Alopecia [Unknown]
  - White blood cell count decreased [Unknown]

NARRATIVE: CASE EVENT DATE: 2018
